FAERS Safety Report 21328811 (Version 1)
Quarter: 2022Q3

REPORT INFORMATION
  Report Type: Spontaneous
  Country: CA (occurrence: CA)
  Receive Date: 20220913
  Receipt Date: 20220913
  Transmission Date: 20221026
  Serious: Yes (Other)
  Sender: FDA-Public Use
  Company Number: CA-PFIZER INC-202200822078

PATIENT
  Age: 58 Year
  Sex: Female

DRUGS (6)
  1. XELJANZ [Suspect]
     Active Substance: TOFACITINIB CITRATE
     Indication: Colitis ulcerative
     Dosage: 10 MG TWICE DAILY FOR 8 WEEKS, THEN 5MG TWICE DAILY
     Route: 048
     Dates: start: 20220324
  2. XELJANZ [Suspect]
     Active Substance: TOFACITINIB CITRATE
     Dosage: 5 MG, MAINTENANCE - NOT YET STARTED
     Route: 048
  3. XELJANZ [Suspect]
     Active Substance: TOFACITINIB CITRATE
     Dosage: 10 MG TWICE DAILY FOR 8 WEEKS - (EXTENDED OVER 8 WEEKS)
     Route: 048
     Dates: start: 20220324
  4. CORTISONE [Concomitant]
     Active Substance: CORTISONE
     Dosage: UNK
  5. ENTOCORT [Concomitant]
     Active Substance: BUDESONIDE
     Dosage: 1 DF, DAILY, DOSAGE INFORMATION NOT AVAILABLE (1X/DAY)
  6. MESALAMINE [Concomitant]
     Active Substance: MESALAMINE
     Dosage: 1 DF, 8 CO PER DAY (1X/DAY)
     Route: 048

REACTIONS (4)
  - Colitis ulcerative [Unknown]
  - Haematochezia [Not Recovered/Not Resolved]
  - Drug ineffective [Unknown]
  - Abdominal pain [Not Recovered/Not Resolved]

NARRATIVE: CASE EVENT DATE: 20220101
